FAERS Safety Report 9583172 (Version 1)
Quarter: 2013Q4

REPORT INFORMATION
  Report Type: Spontaneous
  Country: US (occurrence: US)
  Receive Date: 20131002
  Receipt Date: 20131002
  Transmission Date: 20140711
  Serious: Yes (Other)
  Sender: FDA-Public Use
  Company Number: US-AMGEN-USASP2013045119

PATIENT
  Age: 34 Year
  Sex: Female
  Weight: 86.17 kg

DRUGS (1)
  1. ENBREL [Suspect]
     Indication: PSORIASIS
     Dosage: 50 MG, QWK
     Route: 058
     Dates: start: 20070101, end: 20100603

REACTIONS (2)
  - Pharyngitis streptococcal [Unknown]
  - Drug ineffective [Unknown]
